FAERS Safety Report 14354286 (Version 1)
Quarter: 2018Q1

REPORT INFORMATION
  Report Type: Spontaneous
  Country: FR (occurrence: FR)
  Receive Date: 20180105
  Receipt Date: 20180105
  Transmission Date: 20180509
  Serious: Yes (Other)
  Sender: FDA-Public Use
  Company Number: FR-MERCK KGAA-2038469

PATIENT
  Age: 50 Year
  Sex: Female
  Weight: 72 kg

DRUGS (1)
  1. NOVOTHYROX [Suspect]
     Active Substance: LEVOTHYROXINE SODIUM
     Indication: HYPOTHYROIDISM
     Route: 048
     Dates: start: 20170624, end: 20170922

REACTIONS (13)
  - Blood thyroid stimulating hormone increased [Not Recovered/Not Resolved]
  - Fatigue [Not Recovered/Not Resolved]
  - Formication [Recovering/Resolving]
  - Dyspepsia [Recovering/Resolving]
  - Headache [Recovered/Resolved]
  - Vertigo [Recovered/Resolved]
  - Tinnitus [Recovering/Resolving]
  - Visual impairment [Recovered/Resolved]
  - Malaise [Recovering/Resolving]
  - Tachycardia [Not Recovered/Not Resolved]
  - Muscle spasms [Recovering/Resolving]
  - Dyspnoea [Recovered/Resolved]
  - Diarrhoea [Recovering/Resolving]

NARRATIVE: CASE EVENT DATE: 201707
